FAERS Safety Report 4778697-6 (Version None)
Quarter: 2005Q3

REPORT INFORMATION
  Report Type: 
  Country: None (occurrence: None)
  Receive Date: 20050922
  Receipt Date: 20050905
  Transmission Date: 20060218
  Serious: Yes (Hospitalization)
  Sender: FDA-Public Use
  Company Number: 2005-131377-NL

PATIENT
  Age: 59 Year
  Sex: Male

DRUGS (6)
  1. VECURONIUM BROMIDE [Suspect]
     Indication: SEDATION
     Dosage: 60 MG INTRAVENOUS DRIP
     Route: 041
     Dates: start: 20050702, end: 20050725
  2. DOPAMINE [Concomitant]
  3. KETAMINE HCL [Concomitant]
  4. MIDAZOLAM HYDROCHLORIDE [Concomitant]
  5. PROPOFOL [Concomitant]
  6. FENTANYL CITATE [Concomitant]

REACTIONS (6)
  - ASTHENIA [None]
  - DIALYSIS [None]
  - GRIP STRENGTH DECREASED [None]
  - HYPOPNOEA [None]
  - MOVEMENT DISORDER [None]
  - NEUROMUSCULAR BLOCK PROLONGED [None]
